FAERS Safety Report 23976333 (Version 1)
Quarter: 2024Q2

REPORT INFORMATION
  Report Type: Spontaneous
  Country: US (occurrence: None)
  Receive Date: 20240613
  Receipt Date: 20240613
  Transmission Date: 20240716
  Serious: Yes (Disabling)
  Sender: FDA-Public Use
  Company Number: None

PATIENT
  Age: 65 Year
  Sex: Female
  Weight: 67.5 kg

DRUGS (1)
  1. REPATHA [Suspect]
     Active Substance: EVOLOCUMAB
     Indication: Type IIa hyperlipidaemia

REACTIONS (5)
  - Weight increased [None]
  - Blood glucose increased [None]
  - Glucose tolerance impaired [None]
  - Injection site bruising [None]
  - Device defective [None]

NARRATIVE: CASE EVENT DATE: 20240220
